FAERS Safety Report 6493224-3 (Version None)
Quarter: 2009Q4

REPORT INFORMATION
  Report Type: 
  Country: None (occurrence: None)
  Receive Date: 20091214
  Receipt Date: 20091117
  Transmission Date: 20100525
  Serious: No
  Sender: FDA-Public Use
  Company Number: US-BAYER-200916975BCC

PATIENT
  Age: 54 Year
  Sex: Female
  Weight: 67 kg

DRUGS (5)
  1. ALEVE (CAPLET) [Suspect]
     Indication: BACK PAIN
     Dosage: UNIT DOSE: 1 DF
     Route: 048
     Dates: start: 20091027, end: 20091027
  2. ALEVE (CAPLET) [Suspect]
     Dosage: UNIT DOSE: 1 DF
     Route: 048
     Dates: start: 20091029
  3. PROMETRIUM [Concomitant]
     Route: 048
  4. EVAMIST [Concomitant]
     Route: 065
  5. OMEPRAZOLE [Concomitant]
     Route: 065

REACTIONS (2)
  - BACK PAIN [None]
  - HEADACHE [None]
